FAERS Safety Report 4494635-8 (Version None)
Quarter: 2004Q4

REPORT INFORMATION
  Report Type: 
  Country: None (occurrence: None)
  Receive Date: 20041103
  Receipt Date: 20041005
  Transmission Date: 20050328
  Serious: Yes (Hospitalization)
  Sender: FDA-Public Use
  Company Number: 2004IC000854

PATIENT
  Age: 45 Year
  Sex: Female
  Weight: 164 kg

DRUGS (7)
  1. DALMADORM ^ICN^ (FLURAZEPAM HYDROCHLORIDE) 930 MG) [Suspect]
     Indication: BIPOLAR DISORDER
     Dosage: 20 MG; DAILY; ORAL
     Route: 048
  2. SEROQUEL [Suspect]
     Indication: BIPOLAR DISORDER
     Dosage: 200 MG;XL; ORAL
     Route: 048
     Dates: start: 20040422, end: 20040422
  3. ZYPREXA [Suspect]
     Indication: BIPOLAR DISORDER
     Dosage: 10 MG; DAILY; ORAL
     Route: 048
  4. LORAZEPAM [Suspect]
     Indication: BIPOLAR DISORDER
     Dosage: 2.5 MG; 2 TIMES A DAY; ORAL
     Route: 048
  5. LITHIUM CARBONATE [Concomitant]
  6. VALPROIC ACID [Concomitant]
  7. AKINETON [Concomitant]

REACTIONS (7)
  - DEPRESSED LEVEL OF CONSCIOUSNESS [None]
  - DISTURBANCE IN ATTENTION [None]
  - EYE MOVEMENT DISORDER [None]
  - MIOSIS [None]
  - PUPILLARY REFLEX IMPAIRED [None]
  - RESPIRATORY FAILURE [None]
  - SLEEP APNOEA SYNDROME [None]
